FAERS Safety Report 25163217 (Version 2)
Quarter: 2025Q2

REPORT INFORMATION
  Report Type: Spontaneous
  Country: JP (occurrence: JP)
  Receive Date: 20250404
  Receipt Date: 20250520
  Transmission Date: 20250717
  Serious: Yes (Hospitalization)
  Sender: MERCK SHARP & DOHME LLC
  Company Number: JP-009507513-2271079

PATIENT
  Age: 43 Year
  Sex: Male
  Weight: 62 kg

DRUGS (8)
  1. KEYTRUDA [Suspect]
     Active Substance: PEMBROLIZUMAB
     Indication: Tongue neoplasm malignant stage unspecified
     Route: 041
     Dates: start: 20230519, end: 20240220
  2. HERBALS [Concomitant]
     Active Substance: HERBALS
  3. MINOCYCLINE [Concomitant]
     Active Substance: MINOCYCLINE HYDROCHLORIDE
  4. Bilanoa OD20mg [Concomitant]
  5. Calonal 200mg [Concomitant]
  6. Dalacin T gel [Concomitant]
  7. Heparinoid lotion [Concomitant]
  8. Heparinoid lotion [Concomitant]

REACTIONS (1)
  - Hepatic function abnormal [Recovering/Resolving]

NARRATIVE: CASE EVENT DATE: 20240523
